FAERS Safety Report 8111793-4 (Version None)
Quarter: 2011Q4

REPORT INFORMATION
  Report Type: 
  Country: None (occurrence: None)
  Receive Date: 20111223
  Receipt Date: 20110218
  Transmission Date: 20120403
  Serious: Yes (Other)
  Sender: FDA-Public Use
  Company Number: PHHY2010US85902

PATIENT

DRUGS (1)
  1. CLOZARIL [Suspect]

REACTIONS (3)
  - RED BLOOD CELL COUNT DECREASED [None]
  - ELECTROCARDIOGRAM ABNORMAL [None]
  - DYSPNOEA [None]
